FAERS Safety Report 24871317 (Version 1)
Quarter: 2025Q1

REPORT INFORMATION
  Report Type: Spontaneous
  Country: CN (occurrence: CN)
  Receive Date: 20250122
  Receipt Date: 20250122
  Transmission Date: 20250409
  Serious: Yes (Other)
  Sender: MERCK KGAA
  Company Number: CN-Merck Healthcare KGaA-2025002132

PATIENT
  Age: 24 Year
  Sex: Female

DRUGS (2)
  1. EUTHYROX [Suspect]
     Active Substance: LEVOTHYROXINE SODIUM
     Indication: Product used for unknown indication
     Route: 048
     Dates: start: 202410
  2. EUTHYROX [Suspect]
     Active Substance: LEVOTHYROXINE SODIUM
     Route: 048

REACTIONS (4)
  - Thyroid cancer [Unknown]
  - Blood thyroid stimulating hormone increased [Unknown]
  - Diarrhoea [Recovered/Resolved]
  - Pyrexia [Unknown]
